FAERS Safety Report 21236872 (Version 2)
Quarter: 2022Q3

REPORT INFORMATION
  Report Type: Spontaneous
  Country: US (occurrence: US)
  Receive Date: 20220822
  Receipt Date: 20220927
  Transmission Date: 20221027
  Serious: No
  Sender: FDA-Public Use
  Company Number: US-SA-SAC20220819000336

PATIENT
  Age: 44 Year
  Sex: Male
  Weight: 134 kg

DRUGS (2)
  1. DUPIXENT [Suspect]
     Active Substance: DUPILUMAB
     Indication: Nasal polyps
     Dosage: 300 MG,OTHER
     Route: 058
     Dates: start: 20211123
  2. DUPIXENT [Suspect]
     Active Substance: DUPILUMAB
     Dosage: 300 MG, QM
     Route: 058

REACTIONS (3)
  - Arthralgia [Recovering/Resolving]
  - Product dose omission in error [Unknown]
  - Inappropriate schedule of product administration [Unknown]

NARRATIVE: CASE EVENT DATE: 20211101
